FAERS Safety Report 17867248 (Version 1)
Quarter: 2020Q2

REPORT INFORMATION
  Report Type: Spontaneous
  Country: US (occurrence: US)
  Receive Date: 20200605
  Receipt Date: 20200605
  Transmission Date: 20200714
  Serious: Yes (Other)
  Sender: FDA-Public Use
  Company Number: US-JNJFOC-20200536731

PATIENT
  Sex: Female

DRUGS (11)
  1. SPRAVATO [Suspect]
     Active Substance: ESKETAMINE
     Dates: start: 20200403, end: 20200403
  2. SPRAVATO [Suspect]
     Active Substance: ESKETAMINE
     Dates: start: 20200410, end: 20200410
  3. SPRAVATO [Suspect]
     Active Substance: ESKETAMINE
     Dates: start: 20200512, end: 20200518
  4. SPRAVATO [Suspect]
     Active Substance: ESKETAMINE
  5. SPRAVATO [Suspect]
     Active Substance: ESKETAMINE
     Dates: start: 20200414, end: 20200414
  6. SPRAVATO [Suspect]
     Active Substance: ESKETAMINE
     Dates: start: 20200407, end: 20200407
  7. SPRAVATO [Suspect]
     Active Substance: ESKETAMINE
     Dates: start: 20200421, end: 20200421
  8. SPRAVATO [Suspect]
     Active Substance: ESKETAMINE
     Indication: DEPRESSION
     Dates: start: 20200331, end: 20200331
  9. SPRAVATO [Suspect]
     Active Substance: ESKETAMINE
     Dates: start: 20200418, end: 20200418
  10. SPRAVATO [Suspect]
     Active Substance: ESKETAMINE
     Dates: start: 20200428, end: 20200428
  11. SPRAVATO [Suspect]
     Active Substance: ESKETAMINE
     Dates: start: 20200508, end: 20200510

REACTIONS (2)
  - Abortion spontaneous [Recovered/Resolved]
  - Exposure during pregnancy [Recovered/Resolved]
